FAERS Safety Report 8957122 (Version 1)
Quarter: 2012Q4

REPORT INFORMATION
  Report Type: 
  Country: GB (occurrence: GB)
  Receive Date: 20121210
  Receipt Date: 20121210
  Transmission Date: 20130627
  Serious: Yes (Other)
  Sender: FDA-Public Use
  Company Number: PHHY2012GB112860

PATIENT
  Age: 59 Year
  Sex: Male

DRUGS (2)
  1. TAMSULOSIN [Suspect]
  2. FLUCLOXACILLIN [Suspect]
     Dosage: 1 g, QD
     Route: 041
     Dates: start: 20120926, end: 20120928

REACTIONS (1)
  - Drug-induced liver injury [Not Recovered/Not Resolved]
